FAERS Safety Report 23543968 (Version 1)
Quarter: 2024Q1

REPORT INFORMATION
  Report Type: Spontaneous
  Country: US (occurrence: None)
  Receive Date: 20240216
  Receipt Date: 20240216
  Transmission Date: 20240409
  Serious: No
  Sender: FDA-Public Use
  Company Number: None

PATIENT
  Age: 34 Year
  Sex: Female
  Weight: 88.0 kg

DRUGS (2)
  1. RINVOQ [Suspect]
     Active Substance: UPADACITINIB
     Indication: Spinal disorder
     Dosage: OTHER QUANTITY : TAKE 1 TABLET;?FREQUENCY : DAILY;?
     Route: 048
     Dates: start: 202309
  2. RINVOQ [Suspect]
     Active Substance: UPADACITINIB
     Indication: Ankylosing spondylitis

REACTIONS (2)
  - Gastrointestinal infection [None]
  - Therapy interrupted [None]
